FAERS Safety Report 7285492 (Version 58)
Quarter: 2019Q2

REPORT INFORMATION
  Report Type: Report from Study
  Country: CA (occurrence: CA)
  Receive Date: 20100219
  Receipt Date: 20190626
  Transmission Date: 20190711
  Serious: Yes (Hospitalization, Other)
  Sender: FDA-Public Use
  Company Number: PHHY2010CA07388

PATIENT
  Age: 63 Year
  Sex: Male

DRUGS (5)
  1. APO-METFORMIN [Concomitant]
     Active Substance: METFORMIN HYDROCHLORIDE
     Indication: PRODUCT USED FOR UNKNOWN INDICATION
     Dosage: 500 MG, BID
     Route: 065
     Dates: start: 20160620
  2. SANDOSTATIN LAR DEPOT [Suspect]
     Active Substance: OCTREOTIDE ACETATE
     Indication: NEUROENDOCRINE TUMOUR
     Dosage: 30 MG, QMO (EVERY 4 WEEKS)
     Route: 030
     Dates: start: 20100130
  3. CODEINE [Suspect]
     Active Substance: CODEINE
     Indication: PRODUCT USED FOR UNKNOWN INDICATION
     Route: 065
  4. SANDOSTATIN LAR DEPOT [Suspect]
     Active Substance: OCTREOTIDE ACETATE
     Dosage: 30 MG, QMO
     Route: 030
     Dates: start: 20140625
  5. SANDOSTATIN LAR DEPOT [Suspect]
     Active Substance: OCTREOTIDE ACETATE
     Dosage: 30 MG, QMO
     Route: 030
     Dates: start: 20190130

REACTIONS (26)
  - Diabetes mellitus [Unknown]
  - Hypoaesthesia [Unknown]
  - Gait disturbance [Unknown]
  - Blood pressure increased [Unknown]
  - Ear discomfort [Unknown]
  - Contusion [Unknown]
  - Dyspepsia [Unknown]
  - Metastases to liver [Unknown]
  - Malignant neoplasm progression [Unknown]
  - Pain [Unknown]
  - Blood glucose increased [Recovering/Resolving]
  - Influenza [Unknown]
  - Hypertension [Unknown]
  - Heart rate decreased [Unknown]
  - Dysstasia [Unknown]
  - Chest pain [Recovering/Resolving]
  - Intestinal obstruction [Unknown]
  - Diarrhoea [Unknown]
  - Musculoskeletal discomfort [Unknown]
  - Nasopharyngitis [Unknown]
  - Abdominal pain [Unknown]
  - Sciatica [Unknown]
  - Emotional distress [Unknown]
  - Visual impairment [Unknown]
  - Small intestinal obstruction [Unknown]
  - Malaise [Unknown]

NARRATIVE: CASE EVENT DATE: 20121111
